FAERS Safety Report 16766357 (Version 1)
Quarter: 2019Q3

REPORT INFORMATION
  Report Type: Other
  Country: US (occurrence: IN)
  Receive Date: 20190903
  Receipt Date: 20190903
  Transmission Date: 20191005
  Serious: Yes (Other)
  Sender: FDA-Public Use
  Company Number: IN-BRECKENRIDGE PHARMACEUTICAL, INC.-2073931

PATIENT
  Age: 47 Year
  Sex: Female

DRUGS (1)
  1. EXEMESTANE. [Suspect]
     Active Substance: EXEMESTANE
     Indication: BREAST CANCER

REACTIONS (2)
  - Hypersensitivity vasculitis [Recovering/Resolving]
  - Pseudocellulitis [Recovering/Resolving]
